FAERS Safety Report 17543638 (Version 1)
Quarter: 2020Q1

REPORT INFORMATION
  Report Type: Spontaneous
  Country: US (occurrence: US)
  Receive Date: 20200316
  Receipt Date: 20200316
  Transmission Date: 20200409
  Serious: Yes (Other)
  Sender: FDA-Public Use
  Company Number: US-SA-2020SA061828

PATIENT
  Sex: Male

DRUGS (1)
  1. RANITIDINE. [Suspect]
     Active Substance: RANITIDINE
     Dosage: UNK UNK, QD
     Dates: start: 2004, end: 201910

REACTIONS (2)
  - Anxiety [Unknown]
  - Bladder cancer [Unknown]

NARRATIVE: CASE EVENT DATE: 201705
